FAERS Safety Report 11913604 (Version 5)
Quarter: 2018Q1

REPORT INFORMATION
  Report Type: Spontaneous
  Country: US (occurrence: US)
  Receive Date: 20160113
  Receipt Date: 20180326
  Transmission Date: 20180508
  Serious: Yes (Other)
  Sender: FDA-Public Use
  Company Number: US-PFIZER INC-2015477635

PATIENT
  Age: 41 Year
  Sex: Female
  Weight: 116 kg

DRUGS (35)
  1. LYRICA [Suspect]
     Active Substance: PREGABALIN
     Indication: BACK PAIN
     Dosage: 200 MG, 2X/DAY
     Route: 048
     Dates: start: 200608, end: 20160220
  2. OMEPRAZOLE. [Concomitant]
     Active Substance: OMEPRAZOLE
     Indication: GASTROOESOPHAGEAL REFLUX DISEASE
  3. KLOR-CON [Concomitant]
     Active Substance: POTASSIUM CHLORIDE
     Dosage: 10 AND 20 MEQ 1 TABLET QAM PRN
  4. ZANAFLEX [Concomitant]
     Active Substance: TIZANIDINE HYDROCHLORIDE
     Indication: MUSCLE SPASMS
     Dosage: UNK, 2X/DAY
     Route: 048
  5. ACCOLATE [Concomitant]
     Active Substance: ZAFIRLUKAST
     Indication: HYPERSENSITIVITY
     Dosage: 20 MG, 2X/DAY
     Route: 048
  6. LISINOPRIL. [Concomitant]
     Active Substance: LISINOPRIL
     Indication: CARDIAC DISORDER
     Dosage: 5 MG, 1X/DAY(AT NIGHT, QPM)
     Route: 048
     Dates: start: 2007
  7. XANAX [Concomitant]
     Active Substance: ALPRAZOLAM
     Indication: ANXIETY
     Dosage: 1/2 TO 1 TABLET QPM PRN
     Route: 048
     Dates: start: 2005
  8. SYMBICORT [Concomitant]
     Active Substance: BUDESONIDE\FORMOTEROL FUMARATE DIHYDRATE
     Indication: CHRONIC OBSTRUCTIVE PULMONARY DISEASE
     Dosage: 2 DF, 2X/DAY ([BUDESONIDE: 160/ FORMOTEROL FUMARATE: 4.5], INH,Q12)
     Dates: start: 2007
  9. LYRICA [Suspect]
     Active Substance: PREGABALIN
     Indication: PAIN IN EXTREMITY
  10. KEPPRA [Concomitant]
     Active Substance: LEVETIRACETAM
     Indication: SEIZURE
     Dosage: 500 MG, 2X/DAY (EVERY 12 HOURS)
     Route: 048
     Dates: start: 201410
  11. PROMETHAZINE DM [Concomitant]
     Active Substance: DEXTROMETHORPHAN HYDROBROMIDE\PROMETHAZINE HYDROCHLORIDE
     Dosage: 5 ML, AS NEEDED ([DEXTROMETHORPHAN HYDROBROMIDE:15MG/5ML /PROMETHAZINE HYDROCHLORIDE:6.25MG/5ML,6HR)
     Route: 048
  12. SINGULAIR [Concomitant]
     Active Substance: MONTELUKAST SODIUM
     Indication: HYPERSENSITIVITY
     Dosage: 10 MG, 1X/DAY (QAM)
     Dates: start: 2003
  13. LYRICA [Suspect]
     Active Substance: PREGABALIN
     Indication: NEUROPATHY PERIPHERAL
  14. TOPAMAX [Concomitant]
     Active Substance: TOPIRAMATE
     Dosage: 50 MG TABLET IN MORNING AND 100 MG IN THE EVENING
     Route: 048
  15. ZANAFLEX [Concomitant]
     Active Substance: TIZANIDINE HYDROCHLORIDE
     Dosage: 4 MG 1 TABLET AS NEEDED (EVERY 8 HOURS) NOT TO EXCEED 3 DOSES IN 24 HOURS
     Route: 048
     Dates: start: 2014
  16. XANAX [Concomitant]
     Active Substance: ALPRAZOLAM
     Dosage: 0.5-1 THREE TIMES A DAY AND 2 TABLETS AT NIGHT TWICE A DAY PRN
     Route: 048
  17. LASIX [Concomitant]
     Active Substance: FUROSEMIDE
     Indication: SWELLING
     Dosage: 1-2 TABLETS QAM - PRN
     Route: 048
  18. PRILOSEC [Concomitant]
     Active Substance: OMEPRAZOLE MAGNESIUM
     Dosage: 20 MG, 2X/DAY
     Route: 048
  19. CENTRUM SILVER [Concomitant]
     Active Substance: MINERALS\VITAMINS
     Indication: VITAMIN SUPPLEMENTATION
     Dosage: 1 DF, 1X/DAY
  20. PERCOCET [Concomitant]
     Active Substance: ACETAMINOPHEN\OXYCODONE HYDROCHLORIDE
     Indication: PAIN
  21. PROAIR HFA [Concomitant]
     Active Substance: ALBUTEROL SULFATE
     Indication: DYSPNOEA
  22. TOPAMAX [Concomitant]
     Active Substance: TOPIRAMATE
     Indication: MIGRAINE
     Dosage: 50 MG, 2X/DAY (AM/QPM)
     Route: 048
     Dates: start: 2008
  23. OMEPRAZOLE. [Concomitant]
     Active Substance: OMEPRAZOLE
     Indication: ABDOMINAL DISCOMFORT
     Dosage: 20 MG, 2X/DAY
  24. BENZONATATE. [Concomitant]
     Active Substance: BENZONATATE
     Dosage: 100 MG, AS NEEDED (1 CAPSULE)
     Route: 048
  25. PAROXETINE HCL [Concomitant]
     Active Substance: PAROXETINE HYDROCHLORIDE
     Dosage: 80 MG, DAILY
     Route: 048
  26. BENADRYL [Concomitant]
     Active Substance: DIPHENHYDRAMINE HYDROCHLORIDE
     Dosage: 50 MG, AS NEEDED (AT BEDTIME)
     Route: 048
  27. PERCOCET [Concomitant]
     Active Substance: ACETAMINOPHEN\OXYCODONE HYDROCHLORIDE
     Indication: BACK PAIN
     Dosage: 1 DF, AS NEEDED ([HYDROCODONE BITARTRATE: 10/ PARACETAMOL: 325], Q4-6 HRS, MAX 4 TAB/DAY)
     Route: 048
  28. PAXIL [Concomitant]
     Active Substance: PAROXETINE HYDROCHLORIDE
     Indication: DEPRESSION
     Dosage: 80 MG, 1X/DAY(EVENING,QPM)
     Dates: start: 1996
  29. ZOCOR [Concomitant]
     Active Substance: SIMVASTATIN
     Indication: BLOOD CHOLESTEROL ABNORMAL
     Dosage: 20 MG, 1X/DAY (AT NIGHT )
     Route: 048
  30. XANAX [Concomitant]
     Active Substance: ALPRAZOLAM
     Dosage: 1/2 TO 1 TABLET QD PRN
     Route: 048
     Dates: start: 2007
  31. PROAIR HFA [Concomitant]
     Active Substance: ALBUTEROL SULFATE
     Indication: CHRONIC OBSTRUCTIVE PULMONARY DISEASE
     Dosage: 2 DF, AS NEEDED (2INH)
     Dates: start: 2007
  32. PROAIR HFA [Concomitant]
     Active Substance: ALBUTEROL SULFATE
     Indication: COUGH
  33. COREG [Concomitant]
     Active Substance: CARVEDILOL
     Indication: CARDIAC DISORDER
     Dosage: 6.25 MG, 2X/DAY (WITH FOOD)
     Route: 048
     Dates: start: 2007
  34. XANAX [Concomitant]
     Active Substance: ALPRAZOLAM
     Dosage: 1/2 TO 1 TABLET UP TO 3 TIMES DAILY FOR ANXIETY AND 2 TABS AT NIGHT
     Route: 048
     Dates: start: 200608
  35. TESSALON [Concomitant]
     Active Substance: BENZONATATE
     Indication: COUGH
     Dosage: 100 MG 1-2 CAPSULE TID PRN

REACTIONS (12)
  - Condition aggravated [Not Recovered/Not Resolved]
  - Weight decreased [Unknown]
  - Drug ineffective [Unknown]
  - Memory impairment [Unknown]
  - Pain [Not Recovered/Not Resolved]
  - Back pain [Unknown]
  - Arthritis [Unknown]
  - Drug dose omission [Unknown]
  - Hypoaesthesia [Unknown]
  - Condition aggravated [Unknown]
  - Back injury [Unknown]
  - Malaise [Not Recovered/Not Resolved]

NARRATIVE: CASE EVENT DATE: 200705
